FAERS Safety Report 19182801 (Version 1)
Quarter: 2021Q2

REPORT INFORMATION
  Report Type: Other
  Country: US (occurrence: US)
  Receive Date: 20210426
  Receipt Date: 20210426
  Transmission Date: 20210717
  Serious: Yes (Other)
  Sender: FDA-Public Use
  Company Number: US-ROCHE-2818461

PATIENT
  Age: 71 Month
  Sex: Female

DRUGS (1)
  1. RITUXIMAB. [Suspect]
     Active Substance: RITUXIMAB
     Indication: GLYCOGEN STORAGE DISEASE TYPE II
     Dosage: 4 DOSES
     Route: 042

REACTIONS (3)
  - Pneumonia aspiration [Unknown]
  - Enterovirus infection [Unknown]
  - Rhinovirus infection [Unknown]
